FAERS Safety Report 9470861 (Version 1)
Quarter: 2013Q3

REPORT INFORMATION
  Report Type: Spontaneous
  Country: US (occurrence: None)
  Receive Date: 20130820
  Receipt Date: 20130820
  Transmission Date: 20140515
  Serious: No
  Sender: FDA-Public Use
  Company Number: None

PATIENT
  Sex: Female
  Weight: 43.09 kg

DRUGS (8)
  1. COMBIVENT [Suspect]
     Indication: RESPIRATORY DISORDER
     Dosage: 2 PUFFS EVERY 4 HRS
  2. CARTIA [Concomitant]
  3. SYTHROID [Concomitant]
  4. ACIPHEX [Concomitant]
  5. XANAX [Concomitant]
  6. XOPENEX HFA [Concomitant]
  7. TUDORRA [Concomitant]
  8. CENTRUM IRON-MUSINEX [Concomitant]

REACTIONS (5)
  - Headache [None]
  - Chest discomfort [None]
  - Heart rate irregular [None]
  - Dyspnoea [None]
  - Product substitution issue [None]
